FAERS Safety Report 5339831-2 (Version None)
Quarter: 2007Q2

REPORT INFORMATION
  Report Type: 
  Country: None (occurrence: None)
  Receive Date: 20070529
  Receipt Date: 20070516
  Transmission Date: 20071010
  Serious: Yes (Hospitalization)
  Sender: FDA-Public Use
  Company Number: B0472242A

PATIENT
  Age: 77 Year
  Sex: Female

DRUGS (8)
  1. ALBUTEROL SULFATE [Suspect]
     Dosage: 200 MCG/ SEE DOSAGE TEXT
  2. THEOPHYLLINE [Concomitant]
  3. RAMIPRIL [Concomitant]
  4. VINPOCETINE [Concomitant]
  5. VERAPAMIL [Concomitant]
  6. FLUTICASONE+SALMETEROL [Concomitant]
  7. FRUSEMIDE [Concomitant]
  8. ALBUTEROL SULFATE [Concomitant]

REACTIONS (4)
  - ACUTE MYOCARDIAL INFARCTION [None]
  - CARDIAC FAILURE [None]
  - CORONARY ARTERY STENOSIS [None]
  - MITRAL VALVE INCOMPETENCE [None]
